FAERS Safety Report 17631399 (Version 1)
Quarter: 2020Q2

REPORT INFORMATION
  Report Type: Spontaneous
  Country: US (occurrence: US)
  Receive Date: 20200406
  Receipt Date: 20200406
  Transmission Date: 20200713
  Serious: No
  Sender: FDA-Public Use
  Company Number: US-AERIE-US-2020-001274

PATIENT

DRUGS (11)
  1. ROCKLATAN [Suspect]
     Active Substance: LATANOPROST\NETARSUDIL MESYLATE
     Dosage: 2 GTT DROPS, QHS
     Route: 047
     Dates: end: 20200301
  2. ALLEGRA [Concomitant]
     Active Substance: FEXOFENADINE HYDROCHLORIDE
     Indication: ANTIALLERGIC THERAPY
     Dosage: 1 DOSAGE FORM, BID
     Route: 048
     Dates: start: 20191201
  3. PATANOL [Concomitant]
     Active Substance: OLOPATADINE HYDROCHLORIDE
     Indication: ANTIALLERGIC THERAPY
     Dosage: 2 GTT DROPS, BID
     Route: 047
     Dates: start: 20191201
  4. FISH OIL [Concomitant]
     Active Substance: FISH OIL
     Indication: VITAMIN SUPPLEMENTATION
     Dosage: 1 DOSAGE FORM, QD
     Route: 048
     Dates: start: 20191201
  5. LUMIGAN [Concomitant]
     Active Substance: BIMATOPROST
     Indication: NORMAL TENSION GLAUCOMA
     Route: 047
  6. VYZULTA [Concomitant]
     Active Substance: LATANOPROSTENE BUNOD
     Indication: NORMAL TENSION GLAUCOMA
     Route: 047
  7. ROCKLATAN [Suspect]
     Active Substance: LATANOPROST\NETARSUDIL MESYLATE
     Dosage: 2 GTT DROPS, QHS
     Route: 047
     Dates: start: 20191214
  8. VITAMIN B [Concomitant]
     Active Substance: VITAMIN B
     Indication: VITAMIN SUPPLEMENTATION
     Dosage: 1 DOSAGE FORM, QD
     Route: 048
     Dates: start: 20191201
  9. XALATAN [Concomitant]
     Active Substance: LATANOPROST
     Indication: NORMAL TENSION GLAUCOMA
     Route: 047
  10. ROCKLATAN [Suspect]
     Active Substance: LATANOPROST\NETARSUDIL MESYLATE
     Indication: NORMAL TENSION GLAUCOMA
     Dosage: 2 GTT DROPS, QHS
     Route: 047
     Dates: start: 20190910
  11. SYSTANE (HYPROMELLOSE 2910 (4000 MPA.S)) [Concomitant]
     Active Substance: HYPROMELLOSE 2910 (4000 MPA.S)
     Indication: VITAMIN SUPPLEMENTATION
     Dosage: 1 DOSAGE FORM, QD
     Route: 048
     Dates: start: 20191201

REACTIONS (3)
  - Conjunctivitis allergic [Unknown]
  - Off label use [Unknown]
  - Conjunctival haemorrhage [Unknown]

NARRATIVE: CASE EVENT DATE: 20190910
